APPROVED DRUG PRODUCT: PLERIXAFOR
Active Ingredient: PLERIXAFOR
Strength: 24MG/1.2ML (20MG/ML)
Dosage Form/Route: SOLUTION;SUBCUTANEOUS
Application: A208980 | Product #001
Applicant: ZYDUS PHARMACEUTICALS USA INC
Approved: Jul 26, 2023 | RLD: No | RS: No | Type: DISCN